FAERS Safety Report 7653748-X (Version None)
Quarter: 2011Q3

REPORT INFORMATION
  Report Type: 
  Country: None (occurrence: None)
  Receive Date: 20110803
  Receipt Date: 20110727
  Transmission Date: 20111222
  Serious: Yes (Hospitalization)
  Sender: FDA-Public Use
  Company Number: US-GLAXOSMITHKLINE-A0938546A

PATIENT
  Age: 37 Year
  Sex: Female

DRUGS (2)
  1. NO CONCURRENT MEDICATION [Concomitant]
  2. ADVAIR DISKUS 100/50 [Suspect]
     Indication: DYSPNOEA
     Dosage: 1PUFF TWICE PER DAY
     Route: 055
     Dates: start: 20110625, end: 20110626

REACTIONS (6)
  - FUNGAL OESOPHAGITIS [None]
  - MUSCLE SPASMS [None]
  - CHEST DISCOMFORT [None]
  - INHALATION THERAPY [None]
  - WEIGHT DECREASED [None]
  - PARAESTHESIA [None]
